FAERS Safety Report 8738882 (Version 3)
Quarter: 2013Q4

REPORT INFORMATION
  Report Type: Report from Study
  Country: JP (occurrence: JP)
  Receive Date: 20120823
  Receipt Date: 20131022
  Transmission Date: 20140711
  Serious: Yes (Other)
  Sender: FDA-Public Use
  Company Number: JP-VERTEX PHARMACEUTICAL INC.-2012-019679

PATIENT
  Age: 57 Year
  Sex: Male

DRUGS (5)
  1. VX-950 (TELAPREVIR) [Suspect]
     Indication: CHRONIC HEPATITIS C
     Dosage: 2250 MG, UNK
     Route: 048
     Dates: start: 20120612, end: 20120613
  2. REBETOL [Concomitant]
     Dosage: 800 MG, UNK
     Route: 048
     Dates: start: 20120612
  3. PEGINTRON [Concomitant]
     Dosage: 1.5 ?G/KG, QW
     Route: 058
     Dates: start: 20120612
  4. MICARDIS [Concomitant]
     Dosage: 1.5 UNK, UNK
     Route: 048
  5. SELBEX [Concomitant]
     Dosage: 3 UNK, UNK
     Route: 048
     Dates: start: 20120611

REACTIONS (1)
  - Rash generalised [Recovered/Resolved]
